FAERS Safety Report 8621656-3 (Version None)
Quarter: 2012Q3

REPORT INFORMATION
  Report Type: 
  Country: None (occurrence: None)
  Receive Date: 20120817
  Receipt Date: 20120817
  Transmission Date: 20120928
  Serious: Yes (Other)
  Sender: FDA-Public Use
  Company Number: None

PATIENT
  Sex: Female
  Weight: 34.0198 kg

DRUGS (2)
  1. OLANZAPINE [Suspect]
     Dosage: 10MG ONCE DAILY PO  ONE OR TWO MONTHS
     Route: 048
     Dates: start: 20111212, end: 20120111
  2. TRILEPTAL [Concomitant]

REACTIONS (3)
  - MOOD ALTERED [None]
  - ABNORMAL BEHAVIOUR [None]
  - PRODUCT SUBSTITUTION ISSUE [None]
